FAERS Safety Report 8394938-0 (Version None)
Quarter: 2012Q2

REPORT INFORMATION
  Report Type: 
  Country: None (occurrence: None)
  Receive Date: 20120530
  Receipt Date: 20111006
  Transmission Date: 20120825
  Serious: No
  Sender: FDA-Public Use
  Company Number: US-GLAXOSMITHKLINE-A0948540A

PATIENT
  Age: 60 Year
  Sex: Female

DRUGS (4)
  1. LETAIRIS [Concomitant]
  2. ADCIRCA [Concomitant]
  3. FLOLAN [Suspect]
     Indication: PULMONARY ARTERIAL HYPERTENSION
     Dosage: 32NGKM UNKNOWN
     Route: 042
     Dates: start: 20040206
  4. COUMADIN [Concomitant]

REACTIONS (2)
  - SKIN ULCER [None]
  - ABSCESS [None]
